FAERS Safety Report 18436478 (Version 3)
Quarter: 2020Q4

REPORT INFORMATION
  Report Type: Spontaneous
  Country: SD (occurrence: SD)
  Receive Date: 20201028
  Receipt Date: 20201116
  Transmission Date: 20210114
  Serious: Yes (Death, Hospitalization, Other)
  Sender: FDA-Public Use
  Company Number: SD-SA-2020SA225463

PATIENT

DRUGS (2)
  1. CEREZYME [Suspect]
     Active Substance: IMIGLUCERASE
     Indication: GAUCHER^S DISEASE TYPE I
     Dosage: 600 U, QOW
     Route: 041
     Dates: start: 201812, end: 20200727
  2. FUROSEMIDE. [Concomitant]
     Active Substance: FUROSEMIDE

REACTIONS (22)
  - Respiratory distress [Unknown]
  - Bone marrow infiltration [Unknown]
  - Dyspnoea [Unknown]
  - Death [Fatal]
  - Hyperpyrexia [Unknown]
  - Hypoxia [Unknown]
  - Pallor [Unknown]
  - Ascites [Unknown]
  - Infection [Unknown]
  - Swelling [Unknown]
  - Growth disorder [Unknown]
  - Splenectomy [Unknown]
  - Hepatic vein occlusion [Unknown]
  - Cardiac failure congestive [Unknown]
  - Apnoea [Unknown]
  - Kidney enlargement [Unknown]
  - Abdominal distension [Unknown]
  - Lower respiratory tract infection [Unknown]
  - Hepatosplenomegaly [Unknown]
  - Tetany [Unknown]
  - Cardiomegaly [Unknown]
  - Weight gain poor [Unknown]

NARRATIVE: CASE EVENT DATE: 20190710
